FAERS Safety Report 10207783 (Version 1)
Quarter: 2014Q2

REPORT INFORMATION
  Report Type: Spontaneous
  Country: TW (occurrence: None)
  Receive Date: 20140527
  Receipt Date: 20140527
  Transmission Date: 20141212
  Serious: Yes (Hospitalization)
  Sender: FDA-Public Use
  Company Number: ABR_01659_2014

PATIENT
  Age: 45 Year
  Sex: Female

DRUGS (4)
  1. LAMOTRIGINE (LAMOTRIGINE) [Suspect]
     Indication: BIPOLAR I DISORDER
  2. LAMOTRIGINE (LAMOTRIGINE) [Suspect]
     Indication: SLEEP DISORDER
  3. VALPROIC ACID (VALPROIC ACID) [Suspect]
     Indication: IRRITABILITY
     Dosage: PER NIGHT
  4. VENLAFAXINE [Concomitant]

REACTIONS (4)
  - Rash pruritic [None]
  - Pyrexia [None]
  - Chills [None]
  - Blister [None]
